FAERS Safety Report 12449823 (Version 2)
Quarter: 2017Q1

REPORT INFORMATION
  Report Type: Spontaneous
  Country: US (occurrence: US)
  Receive Date: 20160609
  Receipt Date: 20170309
  Transmission Date: 20170428
  Serious: No
  Sender: FDA-Public Use
  Company Number: US-JNJFOC-20160517707

PATIENT
  Sex: Male

DRUGS (41)
  1. RISPERDAL [Suspect]
     Active Substance: RISPERIDONE
     Indication: BIPOLAR DISORDER
     Route: 048
     Dates: start: 200607, end: 200611
  2. RISPERDAL CONSTA [Suspect]
     Active Substance: RISPERIDONE
     Indication: SCHIZOPHRENIA
     Dosage: 5
     Route: 030
     Dates: start: 201104, end: 201105
  3. RISPERDAL CONSTA [Suspect]
     Active Substance: RISPERIDONE
     Indication: SCHIZOPHRENIA
     Dosage: 2
     Route: 030
     Dates: start: 200704, end: 200705
  4. RISPERDAL CONSTA [Suspect]
     Active Substance: RISPERIDONE
     Indication: MANIA
     Dosage: 5
     Route: 030
     Dates: start: 201101, end: 201103
  5. RISPERDAL CONSTA [Suspect]
     Active Substance: RISPERIDONE
     Indication: MANIA
     Dosage: 3
     Route: 030
     Dates: start: 200705, end: 201011
  6. INVEGA [Suspect]
     Active Substance: PALIPERIDONE
     Indication: SCHIZOPHRENIA
     Dosage: VARYING DOSES OF 3.0 MG, 6.0 MG, 9.0 MG
     Route: 048
     Dates: start: 200901
  7. INVEGA [Suspect]
     Active Substance: PALIPERIDONE
     Indication: SCHIZOPHRENIA
     Dosage: VARYING DOSES OF 3.0 MG, 6.0 MG, 9.0 MG
     Route: 048
     Dates: start: 200702
  8. INVEGA [Suspect]
     Active Substance: PALIPERIDONE
     Indication: BIPOLAR DISORDER
     Dosage: VARYING DOSES OF 6.0 MG AND 9.0 MG
     Route: 048
     Dates: start: 200902
  9. RISPERDAL [Suspect]
     Active Substance: RISPERIDONE
     Indication: SCHIZOPHRENIA
     Route: 048
     Dates: start: 200701
  10. RISPERDAL CONSTA [Suspect]
     Active Substance: RISPERIDONE
     Indication: SCHIZOPHRENIA
     Dosage: 5
     Route: 030
     Dates: start: 201101, end: 201103
  11. RISPERDAL CONSTA [Suspect]
     Active Substance: RISPERIDONE
     Indication: SCHIZOPHRENIA
     Dosage: 2
     Route: 030
     Dates: start: 201003, end: 201005
  12. INVEGA [Suspect]
     Active Substance: PALIPERIDONE
     Indication: BIPOLAR DISORDER
     Dosage: VARYING DOSES OF 3.0 MG, 6.0 MG, 9.0 MG
     Route: 048
     Dates: start: 200702
  13. RISPERDAL CONSTA [Suspect]
     Active Substance: RISPERIDONE
     Indication: MANIA
     Dosage: 2
     Route: 030
     Dates: start: 201003, end: 201005
  14. RISPERDAL CONSTA [Suspect]
     Active Substance: RISPERIDONE
     Indication: BIPOLAR DISORDER
     Dosage: 5
     Route: 030
     Dates: start: 201101, end: 201103
  15. INVEGA [Suspect]
     Active Substance: PALIPERIDONE
     Indication: SCHIZOPHRENIA
     Dosage: VARYING DOSES OF 3.0 MG, 6.0 MG, 9.0 MG
     Route: 048
     Dates: start: 200711, end: 200801
  16. INVEGA [Suspect]
     Active Substance: PALIPERIDONE
     Indication: BIPOLAR DISORDER
     Dosage: VARYING DOSES OF 3.0 MG, 6.0 MG, 9.0 MG
     Route: 048
     Dates: start: 200711, end: 200801
  17. RISPERDAL CONSTA [Suspect]
     Active Substance: RISPERIDONE
     Indication: MANIA
     Dosage: 2
     Route: 030
     Dates: start: 200704, end: 200705
  18. RISPERDAL CONSTA [Suspect]
     Active Substance: RISPERIDONE
     Indication: MANIA
     Dosage: 5
     Route: 030
     Dates: start: 201104, end: 201105
  19. INVEGA [Suspect]
     Active Substance: PALIPERIDONE
     Indication: SCHIZOPHRENIA
     Dosage: 1.5 ML (CONFLICTING REPORTED)
     Route: 048
     Dates: start: 201510
  20. INVEGA [Suspect]
     Active Substance: PALIPERIDONE
     Indication: SCHIZOPHRENIA
     Dosage: VARYING DOSES OF 3.0 MG, 6.0 MG, 9.0 MG
     Route: 048
     Dates: start: 200903
  21. INVEGA [Suspect]
     Active Substance: PALIPERIDONE
     Indication: MANIA
     Dosage: VARYING DOSES OF 6.0 MG AND 9.0 MG
     Route: 048
     Dates: start: 200902
  22. INVEGA SUSTENNA [Suspect]
     Active Substance: PALIPERIDONE PALMITATE
     Indication: PRODUCT USED FOR UNKNOWN INDICATION
     Route: 030
  23. RISPERDAL [Suspect]
     Active Substance: RISPERIDONE
     Indication: MANIA
     Route: 048
     Dates: start: 200701
  24. RISPERDAL CONSTA [Suspect]
     Active Substance: RISPERIDONE
     Indication: BIPOLAR DISORDER
     Dosage: 3
     Route: 030
     Dates: start: 200705, end: 201011
  25. INVEGA [Suspect]
     Active Substance: PALIPERIDONE
     Indication: MANIA
     Dosage: 1.5 ML (CONFLICTING REPORTED)
     Route: 048
     Dates: start: 201510
  26. INVEGA [Suspect]
     Active Substance: PALIPERIDONE
     Indication: BIPOLAR DISORDER
     Dosage: VARYING DOSES OF 3.0 MG, 6.0 MG, 9.0 MG
     Route: 048
     Dates: start: 200901
  27. INVEGA [Suspect]
     Active Substance: PALIPERIDONE
     Indication: BIPOLAR DISORDER
     Dosage: VARYING DOSES OF 3.0 MG, 6.0 MG, 9.0 MG
     Route: 048
     Dates: start: 200903
  28. RISPERDAL [Suspect]
     Active Substance: RISPERIDONE
     Indication: SCHIZOPHRENIA
     Route: 048
     Dates: start: 200607, end: 200611
  29. RISPERDAL [Suspect]
     Active Substance: RISPERIDONE
     Indication: MANIA
     Route: 048
     Dates: start: 200607, end: 200611
  30. RISPERDAL CONSTA [Suspect]
     Active Substance: RISPERIDONE
     Indication: BIPOLAR DISORDER
     Dosage: 2
     Route: 030
     Dates: start: 201003, end: 201005
  31. INVEGA [Suspect]
     Active Substance: PALIPERIDONE
     Indication: MANIA
     Dosage: VARYING DOSES OF 3.0 MG, 6.0 MG, 9.0 MG
     Route: 048
     Dates: start: 200702
  32. INVEGA [Suspect]
     Active Substance: PALIPERIDONE
     Indication: MANIA
     Dosage: VARYING DOSES OF 3.0 MG, 6.0 MG, 9.0 MG
     Route: 048
     Dates: start: 200903
  33. RISPERDAL CONSTA [Suspect]
     Active Substance: RISPERIDONE
     Indication: BIPOLAR DISORDER
     Dosage: 5
     Route: 030
     Dates: start: 201104, end: 201105
  34. RISPERDAL CONSTA [Suspect]
     Active Substance: RISPERIDONE
     Indication: BIPOLAR DISORDER
     Dosage: 2
     Route: 030
     Dates: start: 200704, end: 200705
  35. INVEGA [Suspect]
     Active Substance: PALIPERIDONE
     Indication: SCHIZOPHRENIA
     Dosage: VARYING DOSES OF 6.0 MG AND 9.0 MG
     Route: 048
     Dates: start: 200902
  36. INVEGA [Suspect]
     Active Substance: PALIPERIDONE
     Indication: MANIA
     Dosage: VARYING DOSES OF 3.0 MG, 6.0 MG, 9.0 MG
     Route: 048
     Dates: start: 200901
  37. INVEGA [Suspect]
     Active Substance: PALIPERIDONE
     Indication: BIPOLAR DISORDER
     Dosage: 1.5 ML (CONFLICTING REPORTED)
     Route: 048
     Dates: start: 201510
  38. RISPERDAL [Suspect]
     Active Substance: RISPERIDONE
     Indication: BIPOLAR DISORDER
     Route: 048
     Dates: start: 200701
  39. RISPERDAL CONSTA [Suspect]
     Active Substance: RISPERIDONE
     Indication: SCHIZOPHRENIA
     Dosage: 3
     Route: 030
     Dates: start: 200705, end: 201011
  40. INVEGA [Suspect]
     Active Substance: PALIPERIDONE
     Indication: MANIA
     Dosage: VARYING DOSES OF 3.0 MG, 6.0 MG, 9.0 MG
     Route: 048
     Dates: start: 200711, end: 200801
  41. RISPERIDONE. [Suspect]
     Active Substance: RISPERIDONE
     Indication: PRODUCT USED FOR UNKNOWN INDICATION
     Route: 048

REACTIONS (4)
  - Abnormal weight gain [Unknown]
  - Extrapyramidal disorder [Unknown]
  - Hyperglycaemia [Unknown]
  - Gynaecomastia [Unknown]
